FAERS Safety Report 5025560-1 (Version None)
Quarter: 2006Q2

REPORT INFORMATION
  Report Type: 
  Country: None (occurrence: None)
  Receive Date: 20060426
  Receipt Date: 20060206
  Transmission Date: 20061013
  Serious: Yes (Other)
  Sender: FDA-Public Use
  Company Number: 2006019623

PATIENT
  Age: 52 Year
  Sex: Female
  Weight: 74.8435 kg

DRUGS (7)
  1. LYRICA [Suspect]
     Indication: BONE PAIN
     Dosage: 150 MG (75 MG, 2 IN 1 D)
     Dates: start: 20060111
  2. LYRICA [Suspect]
     Indication: NEUROPATHY PERIPHERAL
     Dosage: 150 MG (75 MG, 2 IN 1 D)
     Dates: start: 20060111
  3. EFFEXOR [Concomitant]
  4. ATENOLOL [Concomitant]
  5. DYAZIDE [Concomitant]
  6. SYNTHROID [Concomitant]
  7. CLIMARA [Concomitant]

REACTIONS (2)
  - DIZZINESS [None]
  - DRUG INEFFECTIVE [None]
